FAERS Safety Report 6321193-5 (Version None)
Quarter: 2009Q3

REPORT INFORMATION
  Report Type: 
  Country: None (occurrence: None)
  Receive Date: 20090822
  Receipt Date: 20080904
  Transmission Date: 20100115
  Serious: No
  Sender: FDA-Public Use
  Company Number: US-ABBOTT-08P-163-0473256-00

PATIENT
  Sex: Male
  Weight: 81.72 kg

DRUGS (12)
  1. NIASPAN [Suspect]
     Indication: BLOOD CHOLESTEROL INCREASED
     Dosage: 1500 MG EVERY NIGHT
     Dates: start: 20080715
  2. NIASPAN [Suspect]
     Dates: start: 20070301, end: 20080714
  3. NIASPAN [Suspect]
     Dates: end: 20080714
  4. NIASPAN [Suspect]
     Dates: start: 20080715
  5. SIMVASTATIN [Concomitant]
     Indication: BLOOD CHOLESTEROL INCREASED
  6. LISINOPRIL [Concomitant]
     Indication: HYPERTENSION
  7. TERBINAFINE HCL [Concomitant]
     Indication: ONYCHOMYCOSIS
  8. FISH OIL [Concomitant]
     Indication: DRUG USE FOR UNKNOWN INDICATION
  9. VIGRAN [Concomitant]
     Indication: DRUG USE FOR UNKNOWN INDICATION
  10. B-KOMPLEX [Concomitant]
     Indication: ASTHENIA
  11. ZOLPIDEM TARTRATE [Concomitant]
     Indication: INSOMNIA
  12. ERGOCALCIFEROL [Concomitant]
     Indication: VITAMIN D DEFICIENCY

REACTIONS (3)
  - FLUSHING [None]
  - ORAL SURGERY [None]
  - PRURITUS [None]
